FAERS Safety Report 8363354 (Version 2)
Quarter: 2013Q1

REPORT INFORMATION
  Report Type: Report from Study
  Country: US (occurrence: US)
  Receive Date: 20120127
  Receipt Date: 20130130
  Transmission Date: 20140127
  Serious: Yes (Hospitalization)
  Sender: FDA-Public Use
  Company Number: US-ABBOTT-11P-163-0706712-00

PATIENT
  Age: 59 None
  Sex: Female
  Weight: 61.29 kg

DRUGS (7)
  1. HUMIRA 40 MG/0.8 ML PEN [Suspect]
     Indication: CROHN^S DISEASE
     Dates: start: 20100309
  2. UNSPECIFIED INGREDIENT [Suspect]
     Indication: CROHN^S DISEASE
  3. IMURAN [Concomitant]
     Indication: CROHN^S DISEASE
  4. TOPROL [Concomitant]
     Indication: TACHYCARDIA
  5. ASA [Concomitant]
     Indication: THROMBOSIS PROPHYLAXIS
     Dates: start: 201009
  6. ASA [Concomitant]
     Indication: HIP SURGERY
  7. ZOCOR [Concomitant]
     Indication: BLOOD CHOLESTEROL INCREASED
     Route: 048

REACTIONS (10)
  - Osteonecrosis [Recovered/Resolved]
  - Hypoaesthesia [Recovered/Resolved]
  - Hypoaesthesia [Recovered/Resolved]
  - Device malfunction [Recovered/Resolved]
  - Incorrect dose administered [Recovered/Resolved]
  - Paraesthesia [Recovered/Resolved]
  - Pain in extremity [Recovered/Resolved]
  - Musculoskeletal pain [Recovered/Resolved]
  - Injection site pain [Recovered/Resolved]
  - Injection site pain [Recovered/Resolved]
